FAERS Safety Report 8306987-9 (Version None)
Quarter: 2012Q2

REPORT INFORMATION
  Report Type: 
  Country: None (occurrence: None)
  Receive Date: 20120424
  Receipt Date: 20120410
  Transmission Date: 20120825
  Serious: Yes (Other)
  Sender: FDA-Public Use
  Company Number: PHHY2012KR000461

PATIENT
  Sex: Male
  Weight: 63 kg

DRUGS (3)
  1. EXJADE [Suspect]
     Indication: IRON OVERLOAD
     Dosage: 2500 MG/DAY
     Route: 048
     Dates: start: 20090828
  2. EXJADE [Suspect]
     Dosage: 1250 MG DAILY
     Route: 048
  3. EXJADE [Suspect]
     Dosage: 2500 MG/DAY
     Route: 048

REACTIONS (1)
  - OSTEOPOROSIS [None]
